FAERS Safety Report 5047735-8 (Version None)
Quarter: 2006Q3

REPORT INFORMATION
  Report Type: 
  Country: None (occurrence: None)
  Receive Date: 20060710
  Receipt Date: 20060710
  Transmission Date: 20061208
  Serious: Yes (Other)
  Sender: FDA-Public Use
  Company Number: None

PATIENT
  Age: 90 Year
  Sex: Male
  Weight: 61 kg

DRUGS (4)
  1. ZOSYN [Suspect]
     Indication: PNEUMONIA
     Dosage: 3.375GM  Q8H  IV
     Route: 042
     Dates: start: 20060601, end: 20060603
  2. ZOSYN [Suspect]
     Indication: SEPSIS
     Dosage: 3.375GM  Q8H  IV
     Route: 042
     Dates: start: 20060601, end: 20060603
  3. FLAGYL [Concomitant]
  4. VANCOMYCIN [Concomitant]

REACTIONS (2)
  - PRURITUS [None]
  - RASH [None]
